FAERS Safety Report 6582360-9 (Version None)
Quarter: 2010Q1

REPORT INFORMATION
  Report Type: 
  Country: None (occurrence: None)
  Receive Date: 20100216
  Receipt Date: 20100202
  Transmission Date: 20100710
  Serious: Yes (Other)
  Sender: FDA-Public Use
  Company Number: NO-GENZYME-FABR-1001183

PATIENT
  Sex: Female
  Weight: 70 kg

DRUGS (5)
  1. FABRAZYME [Suspect]
     Indication: FABRY'S DISEASE
     Dosage: 0.5 MG, UNK
     Dates: start: 20080401
  2. FABRAZYME [Suspect]
     Dosage: UNK
     Dates: start: 20040301
  3. ATACAND [Concomitant]
     Indication: DRUG USE FOR UNKNOWN INDICATION
     Dosage: 8 MG, UNK
  4. SIMVASTATIN [Concomitant]
     Indication: DRUG USE FOR UNKNOWN INDICATION
     Dosage: 40 MG, UNK
  5. REPLAGAL [Concomitant]
     Indication: FABRY'S DISEASE

REACTIONS (7)
  - BRAIN NATRIURETIC PEPTIDE INCREASED [None]
  - CARDIAC HYPERTROPHY [None]
  - CARDIOMYOPATHY [None]
  - ELECTROCARDIOGRAM T WAVE INVERSION [None]
  - LEFT VENTRICULAR HYPERTROPHY [None]
  - TREATMENT FAILURE [None]
  - UNDERDOSE [None]
